FAERS Safety Report 5015314-4 (Version None)
Quarter: 2006Q2

REPORT INFORMATION
  Report Type: 
  Country: None (occurrence: None)
  Receive Date: 20060601
  Receipt Date: 20060420
  Transmission Date: 20061013
  Serious: Yes (Hospitalization, Disabling)
  Sender: FDA-Public Use
  Company Number: FR-SANOFI-SYNTHELABO-A02200601058

PATIENT
  Sex: Female
  Weight: 63 kg

DRUGS (3)
  1. STILNOX [Suspect]
     Indication: MUSCLE RELAXANT THERAPY
     Route: 048
     Dates: start: 20010101, end: 20060410
  2. STILNOX [Suspect]
     Route: 048
     Dates: start: 20010101, end: 20060410
  3. STILNOX [Suspect]
     Route: 048
     Dates: start: 20010101, end: 20060410

REACTIONS (7)
  - ABNORMAL BEHAVIOUR [None]
  - AGITATION [None]
  - CONFUSIONAL STATE [None]
  - DISORIENTATION [None]
  - DRUG ABUSER [None]
  - EXHIBITIONISM [None]
  - GRAND MAL CONVULSION [None]
